FAERS Safety Report 23275518 (Version 1)
Quarter: 2023Q4

REPORT INFORMATION
  Report Type: Spontaneous
  Country: CN (occurrence: None)
  Receive Date: 20231208
  Receipt Date: 20231208
  Transmission Date: 20240109
  Serious: Yes (Other)
  Sender: FDA-Public Use
  Company Number: 2023A274947

PATIENT
  Age: 25575 Day
  Sex: Female
  Weight: 63 kg

DRUGS (7)
  1. OSIMERTINIB MESYLATE [Suspect]
     Active Substance: OSIMERTINIB MESYLATE
     Indication: Neoplasm malignant
     Route: 048
     Dates: start: 20231118, end: 20231118
  2. PEMETREXED DISODIUM [Suspect]
     Active Substance: PEMETREXED DISODIUM
     Indication: Neoplasm malignant
     Route: 041
     Dates: start: 20231118, end: 20231118
  3. PEMETREXED DISODIUM [Suspect]
     Active Substance: PEMETREXED DISODIUM
     Indication: Neoplasm malignant
     Route: 041
     Dates: start: 20231118, end: 20231118
  4. AVASTIN [Suspect]
     Active Substance: BEVACIZUMAB
     Indication: Neoplasm malignant
     Route: 041
     Dates: start: 20231118, end: 20231118
  5. SODIUM CHLORIDE [Concomitant]
     Active Substance: SODIUM CHLORIDE
     Indication: Neoplasm malignant
     Route: 041
     Dates: start: 20231118, end: 20231118
  6. SODIUM CHLORIDE [Concomitant]
     Active Substance: SODIUM CHLORIDE
     Indication: Neoplasm malignant
     Route: 041
     Dates: start: 20231118, end: 20231118
  7. SODIUM CHLORIDE [Concomitant]
     Active Substance: SODIUM CHLORIDE
     Indication: Neoplasm malignant
     Route: 041
     Dates: start: 20231118, end: 20231118

REACTIONS (1)
  - Myelosuppression [Unknown]
